FAERS Safety Report 5850237-X (Version None)
Quarter: 2008Q3

REPORT INFORMATION
  Report Type: 
  Country: None (occurrence: None)
  Receive Date: 20080819
  Receipt Date: 20080815
  Transmission Date: 20090109
  Serious: Yes (Hospitalization)
  Sender: FDA-Public Use
  Company Number: NL-GENENTECH-264860

PATIENT
  Sex: Male
  Weight: 65 kg

DRUGS (8)
  1. EFALIZUMAB [Suspect]
     Indication: PSORIASIS
     Dosage: 0.7 MG/KG, SINGLE
     Route: 058
     Dates: start: 20080515
  2. EFALIZUMAB [Suspect]
     Dosage: 1 MG/KG, 1/WEEK
     Route: 058
     Dates: end: 20080710
  3. DURAGESIC-100 [Concomitant]
     Indication: DRUG USE FOR UNKNOWN INDICATION
     Dosage: 75 MG, Q3D
     Dates: start: 20040101
  4. PANTOZOL [Concomitant]
     Indication: DRUG USE FOR UNKNOWN INDICATION
     Dosage: 40 MG, QD
     Dates: start: 20060101
  5. OXPRENOLOL [Concomitant]
     Indication: DRUG USE FOR UNKNOWN INDICATION
     Dosage: 160 MG, QD
     Dates: start: 19780101
  6. IRBESARTAN [Concomitant]
     Indication: DRUG USE FOR UNKNOWN INDICATION
     Dosage: 300 MG, QD
     Dates: start: 20000101
  7. LORAZEPAM [Concomitant]
     Indication: DRUG USE FOR UNKNOWN INDICATION
     Dosage: 1 MG, TID
     Dates: start: 19830101
  8. ACENOCOUMAROL [Concomitant]
     Indication: DRUG USE FOR UNKNOWN INDICATION
     Dosage: 1 MG, QD
     Dates: start: 20030101

REACTIONS (3)
  - BLADDER CANCER [None]
  - MALAISE [None]
  - PYREXIA [None]
